FAERS Safety Report 4660368-8 (Version None)
Quarter: 2005Q2

REPORT INFORMATION
  Report Type: 
  Country: None (occurrence: None)
  Receive Date: 20050511
  Receipt Date: 20050511
  Transmission Date: 20051028
  Serious: Yes (Life-Threatening)
  Sender: FDA-Public Use
  Company Number: None

PATIENT
  Age: 79 Year
  Sex: Female
  Weight: 79 kg

DRUGS (18)
  1. ENOXAPARIN SODIUM [Suspect]
     Indication: MYOCARDIAL INFARCTION
     Dosage: 40 MG DAILY SQ
     Route: 058
     Dates: start: 20050207, end: 20050211
  2. ENOXAPARIN SODIUM [Suspect]
     Indication: THROMBOSIS PROPHYLAXIS
     Dosage: 40 MG DAILY SQ
     Route: 058
     Dates: start: 20050207, end: 20050211
  3. ASPIRIN [Concomitant]
  4. ATENOLOL [Concomitant]
  5. CLOPIDOGREL BISULFATE [Concomitant]
  6. CYCLOBENZAPRINE HCL [Concomitant]
  7. DIAZEPAM [Concomitant]
  8. DOCUSATE [Concomitant]
  9. FELODIPINE [Concomitant]
  10. FLUCONAZOLE [Concomitant]
  11. LEVOFLOXACIN [Concomitant]
  12. MOXIFLOXACIN HCL [Concomitant]
  13. METOPROLOL [Concomitant]
  14. PANTOPRAZOLE SODIUM [Concomitant]
  15. PREDNISONE TAB [Concomitant]
  16. METHYLPREDNISOLONE [Concomitant]
  17. QUINAPRIL [Concomitant]
  18. SIMVASTATIN [Concomitant]

REACTIONS (6)
  - ABDOMINAL HAEMATOMA [None]
  - HAEMATOCRIT DECREASED [None]
  - HAEMOGLOBIN DECREASED [None]
  - HAEMORRHAGE [None]
  - HYPOVOLAEMIA [None]
  - ISCHAEMIC HEPATITIS [None]
